FAERS Safety Report 8831271 (Version 2)
Quarter: 2012Q4

REPORT INFORMATION
  Report Type: 
  Country: BR (occurrence: BR)
  Receive Date: 20121008
  Receipt Date: 20121126
  Transmission Date: 20130627
  Serious: Yes (Death, Hospitalization)
  Sender: FDA-Public Use
  Company Number: BR-PFIZER INC-2012218624

PATIENT
  Age: 47 Year
  Sex: Male
  Weight: 60 kg

DRUGS (3)
  1. SUTENT [Suspect]
     Indication: RENAL CANCER
     Dosage: 1 tablet of 50 mg, 1x/day (first cycle)
     Route: 048
     Dates: start: 20120822, end: 2012
  2. DIMORF [Concomitant]
     Indication: PAIN
     Dosage: 6 / 6 hours (4x/day)
  3. TRAMAL [Concomitant]
     Dosage: UNK

REACTIONS (6)
  - Death [Fatal]
  - Dysuria [Unknown]
  - Epistaxis [Unknown]
  - Thrombocytopenia [Unknown]
  - Decreased appetite [Unknown]
  - Limb discomfort [Unknown]
